FAERS Safety Report 8576905-7 (Version None)
Quarter: 2012Q3

REPORT INFORMATION
  Report Type: 
  Country: None (occurrence: None)
  Receive Date: 20120807
  Receipt Date: 20120726
  Transmission Date: 20120928
  Serious: No
  Sender: FDA-Public Use
  Company Number: US-BAYER-2012-075838

PATIENT
  Sex: Female

DRUGS (2)
  1. CLIMARA [Suspect]
     Dosage: 0.05 MG, CONT
  2. CLIMARA [Suspect]
     Dosage: 0.025 MG, CONT

REACTIONS (2)
  - HOT FLUSH [None]
  - INSOMNIA [None]
